FAERS Safety Report 8163257-X (Version None)
Quarter: 2012Q1

REPORT INFORMATION
  Report Type: 
  Country: None (occurrence: None)
  Receive Date: 20120224
  Receipt Date: 20120222
  Transmission Date: 20120608
  Serious: Yes (Other)
  Sender: FDA-Public Use
  Company Number: AU-PFIZER INC-2012048546

PATIENT
  Sex: Female

DRUGS (2)
  1. PRISTIQ [Suspect]
     Indication: ANXIETY
     Dosage: 50 MG
  2. PRISTIQ [Suspect]
     Dosage: 100 MG

REACTIONS (2)
  - SUICIDAL IDEATION [None]
  - SOMNOLENCE [None]
